FAERS Safety Report 16905391 (Version 5)
Quarter: 2020Q1

REPORT INFORMATION
  Report Type: Report from Study
  Country: US (occurrence: US)
  Receive Date: 20191010
  Receipt Date: 20200127
  Transmission Date: 20200409
  Serious: Yes (Life-Threatening, Hospitalization)
  Sender: FDA-Public Use
  Company Number: US-AVEXISPRA-CTR-AVXS12019-0023

PATIENT
  Age: 6 Month
  Sex: Female
  Weight: 8.3 kg

DRUGS (9)
  1. PREDNISOLONE. [Concomitant]
     Active Substance: PREDNISOLONE
     Indication: PROPHYLAXIS
  2. PREVNAR 13 [Concomitant]
     Active Substance: PNEUMOCOCCAL 13-VALENT CONJUGATE VACCINE
     Dosage: UNK
     Dates: start: 20190926, end: 20190926
  3. PULMOZYME [Concomitant]
     Active Substance: DORNASE ALFA
     Dosage: UNK
     Dates: start: 20190919, end: 20191219
  4. PREDNISONE. [Concomitant]
     Active Substance: PREDNISONE
     Dosage: UNK
     Dates: start: 20190916, end: 20191110
  5. AVXS-101 [Suspect]
     Active Substance: ONASEMNOGENE ABEPARVOVEC
     Indication: SPINAL MUSCULAR ATROPHY
     Dosage: 35.8 MILLILITER (1.1 X 10^14 VG/KG), SINGLE
     Route: 042
     Dates: start: 20190920, end: 20190920
  6. ATROVENT [Concomitant]
     Active Substance: IPRATROPIUM BROMIDE
     Dosage: UNK
     Dates: start: 20190909
  7. ADRENERGIC AGENTS [Concomitant]
     Dosage: UNK
     Dates: start: 20191106, end: 20191201
  8. FLUARIX QUADRIVALENT [Concomitant]
     Dosage: UNK
     Dates: start: 20190926, end: 20190926
  9. DIURETICS [Concomitant]
     Active Substance: UNSPECIFIED INGREDIENT
     Dosage: UNK
     Dates: start: 20190919, end: 20191204

REACTIONS (4)
  - Thrombotic microangiopathy [Recovered/Resolved]
  - Pasteurella infection [Recovered/Resolved]
  - Pneumonia acinetobacter [Recovered/Resolved]
  - Haemolytic uraemic syndrome [Recovered/Resolved]

NARRATIVE: CASE EVENT DATE: 20190923
